FAERS Safety Report 9416740 (Version 1)
Quarter: 2013Q3

REPORT INFORMATION
  Report Type: Spontaneous
  Country: US (occurrence: US)
  Receive Date: 20130724
  Receipt Date: 20130724
  Transmission Date: 20140515
  Serious: No
  Sender: FDA-Public Use
  Company Number: US-GALDERMA-US-GDP-12414463

PATIENT
  Sex: Female

DRUGS (10)
  1. ORACEA (DOXYCYCLINE, USP) CAPSULES 40 MG [Suspect]
     Indication: ROSACEA
     Route: 048
     Dates: start: 2010
  2. DIFLUCAN [Suspect]
  3. NIFEDIPINE XL [Concomitant]
     Indication: HYPERTENSION
     Route: 048
     Dates: start: 2007
  4. LEVOTHYROXINE [Concomitant]
     Indication: THYROID DISORDER
     Route: 048
  5. LOSARTAN [Concomitant]
     Indication: HYPERTENSION
     Route: 048
  6. LIPITOR [Concomitant]
     Indication: PROPHYLAXIS
     Route: 048
  7. DAILY MULTIVITAMIN PLUS IRON [Concomitant]
     Indication: VITAMIN SUPPLEMENTATION
     Route: 048
  8. VITAMIN D [Concomitant]
     Indication: VITAMIN SUPPLEMENTATION
     Route: 048
  9. VITAMIN B6 [Concomitant]
     Indication: VITAMIN SUPPLEMENTATION
     Route: 048
  10. HYDROCODONE/APAP [Concomitant]
     Indication: PAIN IN EXTREMITY
     Dosage: 5-325

REACTIONS (6)
  - Vulvovaginal pruritus [Recovering/Resolving]
  - Blood blister [Recovering/Resolving]
  - Drug hypersensitivity [Unknown]
  - Urticaria [Not Recovered/Not Resolved]
  - Oral herpes [Recovering/Resolving]
  - Incorrect drug administration duration [Not Recovered/Not Resolved]
